FAERS Safety Report 24972293 (Version 1)
Quarter: 2025Q1

REPORT INFORMATION
  Report Type: Report from Study
  Country: TW (occurrence: TW)
  Receive Date: 20250214
  Receipt Date: 20250214
  Transmission Date: 20250408
  Serious: Yes (Death, Other)
  Sender: ALEXION PHARMACEUTICALS
  Company Number: TW-AstraZeneca-CH-00807392A

PATIENT

DRUGS (1)
  1. DURVALUMAB [Suspect]
     Active Substance: DURVALUMAB

REACTIONS (7)
  - Death [Fatal]
  - Pain [Unknown]
  - Urine output decreased [Unknown]
  - Jaundice [Unknown]
  - Feeding disorder [Unknown]
  - Asthenia [Unknown]
  - Death [Fatal]
